FAERS Safety Report 4331519-X (Version None)
Quarter: 2004Q1

REPORT INFORMATION
  Report Type: 
  Country: None (occurrence: None)
  Receive Date: 20040331
  Receipt Date: 20040318
  Transmission Date: 20041129
  Serious: Yes (Other)
  Sender: FDA-Public Use
  Company Number: AT-SHR-04-023175

PATIENT

DRUGS (1)
  1. MIRENA [Suspect]
     Dosage: EXPOSURE DURING PREGNANCY
     Dates: end: 20040901

REACTIONS (2)
  - DRUG EXPOSURE DURING PREGNANCY [None]
  - IRON DEFICIENCY ANAEMIA [None]
